FAERS Safety Report 5089729-2 (Version None)
Quarter: 2006Q3

REPORT INFORMATION
  Report Type: 
  Country: None (occurrence: None)
  Receive Date: 20060731
  Receipt Date: 20060424
  Transmission Date: 20061208
  Serious: Yes (Hospitalization)
  Sender: FDA-Public Use
  Company Number: US200604004034

PATIENT
  Age: 78 Year
  Sex: Female

DRUGS (2)
  1. FORTEO [Suspect]
     Indication: OSTEOPOROSIS
     Dates: end: 20060419
  2. FORTEO [Concomitant]

REACTIONS (6)
  - BLOOD URIC ACID INCREASED [None]
  - DIZZINESS [None]
  - DYSSTASIA [None]
  - GOUT [None]
  - MUSCLE SPASMS [None]
  - VERTIGO [None]
